FAERS Safety Report 18602807 (Version 1)
Quarter: 2020Q4

REPORT INFORMATION
  Report Type: Spontaneous
  Country: US (occurrence: US)
  Receive Date: 20201210
  Receipt Date: 20201210
  Transmission Date: 20210114
  Serious: No
  Sender: FDA-Public Use
  Company Number: US-GE HEALTHCARE LIFE SCIENCES-2020CSU005249

PATIENT
  Age: 67 Year
  Sex: Female

DRUGS (10)
  1. ECOTRIN [Concomitant]
     Active Substance: ASPIRIN
  2. LEXAPRO [Concomitant]
     Active Substance: ESCITALOPRAM OXALATE
  3. ZOCOR [Concomitant]
     Active Substance: SIMVASTATIN
  4. FLUOCINOLONE [Concomitant]
     Active Substance: FLUOCINOLONE
  5. MYCOLOG [Concomitant]
     Active Substance: GRAMICIDIN\NEOMYCIN SULFATE\NYSTATIN\TRIAMCINOLONE ACETONIDE
  6. DATSCAN [Suspect]
     Active Substance: IODINE\IOFLUPANE I-123
     Indication: DIAGNOSTIC PROCEDURE
     Dosage: 203.5 MBQ (5.5 MCI), SINGLE
     Route: 042
     Dates: start: 20201009, end: 20201009
  7. DATSCAN [Suspect]
     Active Substance: IODINE\IOFLUPANE I-123
     Indication: TREMOR
  8. CLOBETASOL [Concomitant]
     Active Substance: CLOBETASOL
  9. LOPRESSOR [Concomitant]
     Active Substance: METOPROLOL TARTRATE
  10. POTASSIUM IODIDE. [Concomitant]
     Active Substance: POTASSIUM IODIDE
     Dosage: 30 ML, 1 HOUR PRIOR TO DATSCAN
     Dates: start: 20201009

REACTIONS (2)
  - Erythema [Not Recovered/Not Resolved]
  - Swelling face [Not Recovered/Not Resolved]

NARRATIVE: CASE EVENT DATE: 20201009
